FAERS Safety Report 4681013-1 (Version None)
Quarter: 2005Q2

REPORT INFORMATION
  Report Type: 
  Country: None (occurrence: None)
  Receive Date: 20050601
  Receipt Date: 20050601
  Transmission Date: 20051028
  Serious: Yes (Other)
  Sender: FDA-Public Use
  Company Number: None

PATIENT
  Age: 40 Year
  Sex: Male
  Weight: 83.9154 kg

DRUGS (2)
  1. PAROXETINE   30 MGS  GENERIC [Suspect]
     Indication: BACK PAIN
     Dosage: 30MGS ONCE DAILY ORAL
     Route: 048
     Dates: start: 20040807, end: 20050601
  2. PAROXETINE   30 MGS  GENERIC [Suspect]
     Indication: DEPRESSION
     Dosage: 30MGS ONCE DAILY ORAL
     Route: 048
     Dates: start: 20040807, end: 20050601

REACTIONS (7)
  - AGGRESSION [None]
  - DEPRESSION [None]
  - DRUG WITHDRAWAL SYNDROME [None]
  - HOSTILITY [None]
  - INSOMNIA [None]
  - MOOD SWINGS [None]
  - SUICIDAL IDEATION [None]
